FAERS Safety Report 21886530 (Version 3)
Quarter: 2023Q1

REPORT INFORMATION
  Report Type: Report from Study
  Country: CA (occurrence: CA)
  Receive Date: 20230119
  Receipt Date: 20230209
  Transmission Date: 20230417
  Serious: Yes (Hospitalization)
  Sender: FDA-Public Use
  Company Number: CA-JNJFOC-20221248004

PATIENT
  Age: 17 Year
  Sex: Male
  Weight: 64 kg

DRUGS (2)
  1. REMICADE [Suspect]
     Active Substance: INFLIXIMAB
     Indication: Colitis ulcerative
     Dosage: 5 MG/KG
     Route: 041
     Dates: start: 20221121
  2. REMICADE [Suspect]
     Active Substance: INFLIXIMAB
     Dosage: 10 MG/KG
     Route: 041

REACTIONS (4)
  - Colitis ulcerative [Not Recovered/Not Resolved]
  - Pallor [Unknown]
  - Malaise [Unknown]
  - SARS-CoV-2 test positive [Unknown]

NARRATIVE: CASE EVENT DATE: 20221201
